FAERS Safety Report 6192498-6 (Version None)
Quarter: 2009Q2

REPORT INFORMATION
  Report Type: 
  Country: None (occurrence: None)
  Receive Date: 20090518
  Receipt Date: 20071005
  Transmission Date: 20091009
  Serious: Yes (Hospitalization, Other)
  Sender: FDA-Public Use
  Company Number: US-ASTRAZENECA-2006UW22685

PATIENT
  Age: 16581 Day
  Sex: Female
  Weight: 62.6 kg

DRUGS (55)
  1. SEROQUEL [Suspect]
     Indication: ANXIETY
     Route: 048
     Dates: start: 20030423, end: 20030622
  2. SEROQUEL [Suspect]
     Indication: SLEEP DISORDER
     Route: 048
     Dates: start: 20030423, end: 20030622
  3. SEROQUEL [Suspect]
     Dosage: 25-150 MG
     Route: 048
     Dates: start: 20030423
  4. SEROQUEL [Suspect]
     Dosage: 25-150 MG
     Route: 048
     Dates: start: 20030423
  5. PRILOSEC [Concomitant]
     Route: 048
  6. TRAZODONE HYDROCHLORIDE [Concomitant]
     Route: 048
     Dates: start: 20031024
  7. ASPIRIN [Concomitant]
     Route: 048
  8. ADVAIR HFA [Concomitant]
     Route: 065
  9. IBUPROFEN [Concomitant]
     Dosage: 300-800 MG
     Route: 048
  10. METOPROLOL [Concomitant]
     Dosage: 25-50 MG
     Route: 065
  11. AMLODIPINE BESYLATE [Concomitant]
     Route: 065
  12. ALBUTEROL [Concomitant]
     Dosage: 2 PUFFS EVERY FOUR HOURS
     Route: 055
     Dates: start: 20030425
  13. RANITIDINE [Concomitant]
     Route: 048
  14. DOCUSATE SODIUM [Concomitant]
     Dosage: 100-200 MG
     Route: 065
     Dates: start: 20030429
  15. ATENOLOL [Concomitant]
     Route: 065
  16. DOXYCYCLINE [Concomitant]
     Route: 065
  17. COMBIVENT [Concomitant]
     Dosage: 2 PUFFS  THREE TIMES A DAY.
     Route: 055
  18. PSEUDOEPHEDRINE HCL [Concomitant]
     Route: 048
  19. GUAIFENESIN [Concomitant]
     Dosage: 100-500 MG
     Route: 048
  20. DIPHENHYDRAMINE HCL [Concomitant]
     Route: 048
  21. KLOR-CON [Concomitant]
     Route: 065
     Dates: start: 20030813
  22. TRIAMTERENE [Concomitant]
     Route: 048
  23. MORPHINE [Concomitant]
     Route: 051
  24. FENTANYL CITRATE [Concomitant]
     Route: 051
  25. MIDAZOLAM HCL [Concomitant]
     Dosage: STRENGTH 1MG/ML, 1-4 MG EVERY HOURLY.
     Route: 051
     Dates: start: 20030516
  26. LORAZEPAM [Concomitant]
     Route: 065
  27. HALOPERIDOL LACTATE [Concomitant]
     Dosage: STRENGTH- 5 MG/ML AND DOSE- 0.5-2 MG
     Route: 051
  28. FERROUS SULFATE TAB [Concomitant]
     Route: 065
  29. OXYCODONE HCL [Concomitant]
     Route: 048
  30. PHENYLEPHRINE [Concomitant]
     Dosage: STRENGTH- 10 MG/ML
     Route: 051
     Dates: start: 20030502
  31. PROTAMINE SULFATE [Concomitant]
     Dosage: STRENGTH- 10 MG/ML.
     Route: 051
  32. PANCURONIUM BROMIDE [Concomitant]
     Dosage: STRENGTH- 10 MG/ML
     Route: 051
  33. ACETAMINOPHEN [Concomitant]
     Indication: PAIN
     Dosage: 325-650 MG
     Route: 048
     Dates: start: 20030430
  34. ACETAMINOPHEN [Concomitant]
     Indication: PYREXIA
     Dosage: 325-650 MG
     Route: 048
     Dates: start: 20030430
  35. OLANZAPINE [Concomitant]
     Dosage: 2.5-10 MG
     Route: 048
  36. LANSOPRAZOLE [Concomitant]
     Route: 048
  37. ZOLPIDEM TARTRATE [Concomitant]
     Route: 048
  38. WARFARIN SODIUM [Concomitant]
     Dosage: 1-5 MG
     Route: 048
     Dates: start: 20030619
  39. TEMAZEPAM [Concomitant]
     Dosage: 7.5 MG - 15 MG
     Route: 048
  40. BISACODYL [Concomitant]
     Route: 054
  41. ENOXAPARIN SODIUM [Concomitant]
     Route: 051
  42. RIFAMPICIN [Concomitant]
     Dosage: 300-600 MG
     Route: 048
     Dates: start: 20030504
  43. WELLBUTRIN [Concomitant]
     Route: 048
  44. DEPAKOTE [Concomitant]
     Dosage: 250-500 MG
     Route: 048
  45. VICODIN [Concomitant]
     Route: 048
     Dates: start: 20031025
  46. FLAGYL [Concomitant]
     Route: 048
  47. EPOETIN ALFA [Concomitant]
     Dosage: STRENGTH- 10.000 U/ML AND DOSE- 1 ML
     Route: 051
     Dates: start: 20030609
  48. LEXAPRO [Concomitant]
     Route: 048
     Dates: start: 20030615
  49. LANTUS [Concomitant]
     Dosage: 12 UNITS
     Route: 051
  50. FLUCONAZOLE [Concomitant]
     Route: 048
     Dates: start: 20030601
  51. SILVER SULFADIAZINE [Concomitant]
     Route: 061
  52. LOPERAMIDE HYDROCHLORIDE [Concomitant]
     Route: 048
  53. NAPROXEN [Concomitant]
     Dosage: 500-1000 MG
     Route: 048
  54. RHINOCORT [Concomitant]
     Route: 065
  55. SOMA [Concomitant]
     Indication: BACK PAIN
     Dosage: 350 MG EVERY 4-6 HOURS.
     Route: 048

REACTIONS (30)
  - ABDOMINAL PAIN [None]
  - ANAEMIA [None]
  - BACK PAIN [None]
  - CARDIAC PACEMAKER REPLACEMENT [None]
  - CHEST PAIN [None]
  - CYSTITIS [None]
  - DEHYDRATION [None]
  - DIABETES MELLITUS [None]
  - DRUG ABUSE [None]
  - DRUG LEVEL BELOW THERAPEUTIC [None]
  - DYSARTHRIA [None]
  - DYSPNOEA [None]
  - ENDOCARDITIS [None]
  - HEADACHE [None]
  - HYPOXIA [None]
  - INSOMNIA [None]
  - INTRA-ABDOMINAL HAEMORRHAGE [None]
  - MEMORY IMPAIRMENT [None]
  - MUSCLE STRAIN [None]
  - MUSCULOSKELETAL PAIN [None]
  - MYOCARDIAL INFARCTION [None]
  - PERICARDITIS [None]
  - PNEUMONIA [None]
  - PRURITUS [None]
  - PULMONARY EMBOLISM [None]
  - RHINITIS ALLERGIC [None]
  - SCHIZOPHRENIA [None]
  - SOMNOLENCE [None]
  - VIRAL UPPER RESPIRATORY TRACT INFECTION [None]
  - VISION BLURRED [None]
